FAERS Safety Report 8266896-0 (Version None)
Quarter: 2012Q2

REPORT INFORMATION
  Report Type: 
  Country: None (occurrence: None)
  Receive Date: 20120404
  Receipt Date: 20120404
  Transmission Date: 20120825
  Serious: Yes (Other)
  Sender: FDA-Public Use
  Company Number: None

PATIENT
  Age: 66 Year
  Sex: 0
  Weight: 113.3993 kg

DRUGS (2)
  1. SIMVASTATIN [Suspect]
     Indication: BLOOD CHOLESTEROL
     Dosage: 40 MG TABLETS DAILY ORAL
     Route: 048
     Dates: start: 20090101, end: 20120101
  2. SIMVASTATIN [Suspect]

REACTIONS (1)
  - PSORIASIS [None]
